FAERS Safety Report 14064795 (Version 1)
Quarter: 2017Q4

REPORT INFORMATION
  Report Type: Spontaneous
  Country: US (occurrence: US)
  Receive Date: 20171009
  Receipt Date: 20171009
  Transmission Date: 20180321
  Serious: Yes (Hospitalization, Other)
  Sender: FDA-Public Use
  Company Number: US-AMGEN-USASP2017149348

PATIENT
  Age: 82 Year
  Sex: Female

DRUGS (1)
  1. PROLIA [Suspect]
     Active Substance: DENOSUMAB
     Indication: OSTEOPOROSIS POSTMENOPAUSAL
     Dosage: UNK
     Route: 065
     Dates: start: 2013

REACTIONS (12)
  - Peripheral swelling [Not Recovered/Not Resolved]
  - Haemorrhage [Unknown]
  - Blood test abnormal [Unknown]
  - Anaemia [Unknown]
  - Oedema peripheral [Unknown]
  - Blister [Not Recovered/Not Resolved]
  - Skin ulcer [Unknown]
  - Gastrointestinal disorder [Unknown]
  - Gastric ulcer [Unknown]
  - Scab [Unknown]
  - Muscle spasms [Not Recovered/Not Resolved]
  - Loss of consciousness [Unknown]

NARRATIVE: CASE EVENT DATE: 2017
